FAERS Safety Report 8606094-1 (Version None)
Quarter: 2012Q3

REPORT INFORMATION
  Report Type: 
  Country: None (occurrence: None)
  Receive Date: 20120820
  Receipt Date: 20120807
  Transmission Date: 20120928
  Serious: Yes (Hospitalization)
  Sender: FDA-Public Use
  Company Number: DE-ROCHE-1100034

PATIENT
  Sex: Male
  Weight: 95 kg

DRUGS (5)
  1. GRANISETRON HYDROCHLORIDE [Suspect]
     Indication: RECTAL CANCER METASTATIC
     Route: 042
     Dates: start: 20120229, end: 20120711
  2. IRINOTECAN HYDROCHLORIDE [Suspect]
     Indication: RECTAL CANCER METASTATIC
     Route: 042
     Dates: start: 20120229, end: 20120711
  3. AVASTIN [Suspect]
     Indication: RECTAL CANCER METASTATIC
     Route: 042
     Dates: start: 20120229, end: 20120704
  4. ATROPINE [Suspect]
     Indication: RECTAL CANCER METASTATIC
     Route: 058
     Dates: start: 20120229, end: 20120711
  5. XELODA [Suspect]
     Indication: RECTAL CANCER METASTATIC
     Route: 048
     Dates: start: 20120229, end: 20120711

REACTIONS (2)
  - INTERNAL HERNIA [None]
  - IMPAIRED HEALING [None]
